FAERS Safety Report 5407901-6 (Version None)
Quarter: 2007Q3

REPORT INFORMATION
  Report Type: 
  Country: None (occurrence: None)
  Receive Date: 20070713
  Receipt Date: 20070429
  Transmission Date: 20080115
  Serious: No
  Sender: FDA-Public Use
  Company Number: 2007SP001572

PATIENT
  Age: 49 Year
  Sex: Female
  Weight: 66.9056 kg

DRUGS (7)
  1. LUNESTA [Suspect]
     Indication: INSOMNIA
     Dosage: 2 MG;1X;ORAL; 4 MG;1X;ORAL
     Route: 048
     Dates: start: 20070401, end: 20070401
  2. LUNESTA [Suspect]
     Indication: INSOMNIA
     Dosage: 2 MG;1X;ORAL; 4 MG;1X;ORAL
     Route: 048
     Dates: start: 20070401, end: 20070401
  3. TRAZODONE HCL [Concomitant]
  4. EFFEXOR XR [Concomitant]
  5. AMITIZA [Concomitant]
  6. ACIPHEX [Concomitant]
  7. PROVIGIL [Concomitant]

REACTIONS (2)
  - OBSESSIVE THOUGHTS [None]
  - POOR QUALITY SLEEP [None]
